FAERS Safety Report 18918410 (Version 1)
Quarter: 2021Q1

REPORT INFORMATION
  Report Type: Spontaneous
  Country: US (occurrence: US)
  Receive Date: 20210219
  Receipt Date: 20210219
  Transmission Date: 20210420
  Serious: Yes (Hospitalization)
  Sender: FDA-Public Use
  Company Number: US-LUNDBECK-DKLU3028552

PATIENT
  Age: 1 Year
  Sex: Female
  Weight: 9.95 kg

DRUGS (2)
  1. SABRIL [Suspect]
     Active Substance: VIGABATRIN
     Indication: INFANTILE SPASMS
     Route: 048
  2. SABRIL [Suspect]
     Active Substance: VIGABATRIN
     Indication: SYSTEMIC INFLAMMATORY RESPONSE SYNDROME

REACTIONS (1)
  - Seizure [Unknown]

NARRATIVE: CASE EVENT DATE: 20210209
